FAERS Safety Report 5323639-8 (Version None)
Quarter: 2007Q2

REPORT INFORMATION
  Report Type: 
  Country: None (occurrence: None)
  Receive Date: 20070514
  Receipt Date: 20070503
  Transmission Date: 20071010
  Serious: Yes (Hospitalization)
  Sender: FDA-Public Use
  Company Number: US-JNJFOC-20070501264

PATIENT
  Sex: Female
  Weight: 86.64 kg

DRUGS (1)
  1. INFLIXIMAB [Suspect]
     Indication: SWEAT GLAND INFECTION
     Route: 042

REACTIONS (5)
  - CHILLS [None]
  - DYSPNOEA [None]
  - JOINT SWELLING [None]
  - PYREXIA [None]
  - VOMITING [None]
